FAERS Safety Report 4989971-2 (Version None)
Quarter: 2006Q2

REPORT INFORMATION
  Report Type: 
  Country: None (occurrence: None)
  Receive Date: 20060503
  Receipt Date: 20060425
  Transmission Date: 20061013
  Serious: Yes (Hospitalization)
  Sender: FDA-Public Use
  Company Number: FR-JNJFOC-20060405367

PATIENT
  Age: 66 Year
  Sex: Male
  Weight: 87 kg

DRUGS (4)
  1. DURAGESIC-100 [Suspect]
     Indication: DECUBITUS ULCER
  2. CORDARONE [Concomitant]
  3. TAHOR [Concomitant]
  4. CARDENSIEL [Concomitant]

REACTIONS (1)
  - COMA [None]
